FAERS Safety Report 4318297-5 (Version None)
Quarter: 2004Q1

REPORT INFORMATION
  Report Type: 
  Country: None (occurrence: None)
  Receive Date: 20040315
  Receipt Date: 20031124
  Transmission Date: 20041129
  Serious: No
  Sender: FDA-Public Use
  Company Number: 2003187834US

PATIENT
  Age: 73 Year
  Sex: Female
  Weight: 81.6 kg

DRUGS (11)
  1. BEXTRA [Suspect]
     Indication: ARTHRITIS
     Dosage: 10 MG
     Dates: start: 20031103, end: 20031122
  2. ALLERCHLOR [Concomitant]
  3. OSTEOBIFLEX [Concomitant]
  4. OSCAL [Concomitant]
  5. MACRODANTIN [Concomitant]
  6. HYZAAR [Concomitant]
  7. COUMADIN [Concomitant]
  8. RABEPRAZOLE SODIUM [Concomitant]
  9. MULTIVITAMIN [Concomitant]
  10. LIPITOR [Concomitant]
  11. BELLASPAS [Concomitant]

REACTIONS (1)
  - HYPOACUSIS [None]
